FAERS Safety Report 5672430-1 (Version None)
Quarter: 2008Q1

REPORT INFORMATION
  Report Type: 
  Country: None (occurrence: None)
  Receive Date: 20080318
  Receipt Date: 20080318
  Transmission Date: 20080703
  Serious: Yes (Other)
  Sender: FDA-Public Use
  Company Number: None

PATIENT
  Age: 42 Year
  Sex: Female
  Weight: 58.9676 kg

DRUGS (1)
  1. AVELOX [Suspect]
     Indication: EAR INFECTION
     Dosage: 10 DAYS 1X DAILY
     Dates: start: 20080312, end: 20080313

REACTIONS (11)
  - AGITATION [None]
  - DEPRESSION [None]
  - DIZZINESS [None]
  - FEAR [None]
  - HEART RATE ABNORMAL [None]
  - ILL-DEFINED DISORDER [None]
  - IMPAIRED DRIVING ABILITY [None]
  - NAUSEA [None]
  - RESPIRATION ABNORMAL [None]
  - SKIN TIGHTNESS [None]
  - SWELLING FACE [None]
